FAERS Safety Report 13942128 (Version 1)
Quarter: 2017Q3

REPORT INFORMATION
  Report Type: Spontaneous
  Country: US (occurrence: None)
  Receive Date: 20170907
  Receipt Date: 20170907
  Transmission Date: 20171127
  Serious: Yes (Disabling)
  Sender: FDA-Public Use
  Company Number: None

PATIENT
  Age: 26 Year
  Sex: Male

DRUGS (1)
  1. OLD SPICE FRESH COLLECTION FIJI [Suspect]
     Active Substance: ALUMINUM ZIRCONIUM TRICHLOROHYDREX GLY
     Dosage: DOSE AMOUNT - 2-3 SWIPES
     Route: 061
     Dates: start: 20170813, end: 20170813

REACTIONS (6)
  - Purulent discharge [None]
  - Wound [None]
  - Skin lesion [None]
  - Chemical burn of skin [None]
  - Rash [None]
  - Skin discomfort [None]

NARRATIVE: CASE EVENT DATE: 20170813
